FAERS Safety Report 16960393 (Version 1)
Quarter: 2019Q4

REPORT INFORMATION
  Report Type: Spontaneous
  Country: JP (occurrence: JP)
  Receive Date: 20191025
  Receipt Date: 20191025
  Transmission Date: 20200122
  Serious: Yes (Other)
  Sender: FDA-Public Use
  Company Number: JP-SUN PHARMACEUTICAL INDUSTRIES LTD-2019RR-225460

PATIENT
  Age: 71 Year
  Sex: Female
  Weight: 52.8 kg

DRUGS (5)
  1. CALCIUM FOLINAT [Suspect]
     Active Substance: LEUCOVORIN CALCIUM
     Indication: COLORECTAL CANCER STAGE IV
     Dosage: 200 MILLIGRAM/SQ. METER (288 MG), AS MFOLFOX-6 THERAPY, 3 CYCLES
     Route: 065
  2. FLUOROURACIL. [Suspect]
     Active Substance: FLUOROURACIL
     Indication: COLORECTAL CANCER STAGE IV
     Dosage: 400 MILLIGRAM/SQ. METER (576 MG), BOLUS, AS MFOLFOX-6 THERAPY, 3 CYCLES
     Route: 065
  3. BEVACIZUMAB. [Suspect]
     Active Substance: BEVACIZUMAB
     Indication: COLORECTAL CANCER STAGE IV
     Dosage: 5 MILLIGRAM/KILOGRAM (264 MG), 3 CYCLES
     Route: 065
  4. OXALIPLATIN. [Suspect]
     Active Substance: OXALIPLATIN
     Indication: COLORECTAL CANCER STAGE IV
     Dosage: 60 MILLIGRAM/SQ. METER (86 MG), AS MFOLFOX-6 THERAPY, 3 CYCLES
     Route: 065
  5. FLUOROURACIL. [Suspect]
     Active Substance: FLUOROURACIL
     Dosage: 2400 MILLIGRAM/SQ. METER (3400 MG), 46-HR INJECTION, AS MFOLFOX-6 THERAPY, 3 CYCLES
     Route: 042

REACTIONS (5)
  - Neutropenia [Unknown]
  - Bone marrow failure [Unknown]
  - Thrombocytopenia [Unknown]
  - Fatigue [Unknown]
  - Disease progression [Unknown]
